FAERS Safety Report 7029549-2 (Version None)
Quarter: 2010Q4

REPORT INFORMATION
  Report Type: 
  Country: None (occurrence: None)
  Receive Date: 20101005
  Receipt Date: 20100927
  Transmission Date: 20110411
  Serious: Yes (Disabling)
  Sender: FDA-Public Use
  Company Number: FR-ALLERGAN-1012315US

PATIENT
  Age: 39 Year
  Sex: Male
  Weight: 60 kg

DRUGS (3)
  1. BOTOX [Suspect]
     Indication: HYPERTONIC BLADDER
     Dosage: 300 UNITS, SINGLE
     Route: 030
     Dates: start: 20100820, end: 20100820
  2. BOTOX [Suspect]
     Indication: INCONTINENCE
  3. DITROPAN [Suspect]
     Dosage: UNK
     Route: 048
     Dates: start: 19950101

REACTIONS (3)
  - ASTHENIA [None]
  - DYSPNOEA [None]
  - MUSCULAR WEAKNESS [None]
